FAERS Safety Report 18208276 (Version 1)
Quarter: 2020Q3

REPORT INFORMATION
  Report Type: Spontaneous
  Country: US (occurrence: US)
  Receive Date: 20200828
  Receipt Date: 20200828
  Transmission Date: 20201103
  Serious: Yes (Death)
  Sender: FDA-Public Use
  Company Number: None

PATIENT
  Age: 67 Year
  Sex: Male
  Weight: 89.2 kg

DRUGS (2)
  1. REMDESIVIR. [Suspect]
     Active Substance: REMDESIVIR
     Indication: COVID-19
     Route: 040
     Dates: start: 20200826, end: 20200827
  2. HEPARIN [Concomitant]
     Active Substance: HEPARIN SODIUM
     Dates: start: 20200825, end: 20200827

REACTIONS (9)
  - Bilevel positive airway pressure [None]
  - Acute myocardial infarction [None]
  - Hypoxia [None]
  - Blood loss anaemia [None]
  - Encephalopathy [None]
  - Hypercapnia [None]
  - Troponin increased [None]
  - Melaena [None]
  - Respiratory failure [None]

NARRATIVE: CASE EVENT DATE: 20200827
